FAERS Safety Report 10080163 (Version 3)
Quarter: 2014Q2

REPORT INFORMATION
  Report Type: Spontaneous
  Country: JP (occurrence: JP)
  Receive Date: 20140415
  Receipt Date: 20140520
  Transmission Date: 20141212
  Serious: Yes (Death, Life-Threatening, Other)
  Sender: FDA-Public Use
  Company Number: PHHY2014JP042138

PATIENT
  Age: 65 Year
  Sex: Female

DRUGS (9)
  1. RIFAMPICIN SANDOZ [Suspect]
     Indication: ATYPICAL MYCOBACTERIAL INFECTION
     Dosage: 450 MG, UNK
     Route: 048
     Dates: start: 20140301, end: 20140310
  2. RIFAMPICIN SANDOZ [Suspect]
     Dosage: 450 MG, UNK
     Route: 048
     Dates: start: 20140319, end: 20140320
  3. EBUTOL [Suspect]
     Indication: ATYPICAL MYCOBACTERIAL INFECTION
     Dosage: 300 MG, UNK
     Route: 048
     Dates: start: 20140301, end: 20140310
  4. EBUTOL [Suspect]
     Dosage: 300 MG, UNK
     Route: 048
     Dates: start: 20140319, end: 20140320
  5. COCARL [Suspect]
     Indication: PYREXIA
     Dosage: 400 MG, UNK
     Route: 048
     Dates: start: 20140319, end: 20140320
  6. GRACEVIT [Concomitant]
     Indication: ATYPICAL MYCOBACTERIAL INFECTION
     Dosage: 100 MG, UNK
     Route: 048
     Dates: start: 20140304, end: 20140309
  7. CARBOCISTEINE [Concomitant]
     Indication: ATYPICAL MYCOBACTERIAL INFECTION
     Dosage: 750 MG, UNK
     Route: 048
     Dates: end: 20140320
  8. BROTIZOLAM [Concomitant]
     Indication: INSOMNIA
     Route: 048
     Dates: end: 20140320
  9. REBAMIPIDE [Concomitant]
     Dosage: 300 MG, UNK
     Route: 048
     Dates: end: 20140320

REACTIONS (15)
  - Death [Fatal]
  - Hepatitis fulminant [Recovered/Resolved]
  - Blood bilirubin increased [Recovered/Resolved]
  - Hepatic enzyme increased [Recovered/Resolved]
  - Alanine aminotransferase increased [Recovered/Resolved]
  - Aspartate aminotransferase increased [Recovered/Resolved]
  - Prothrombin level increased [Recovered/Resolved]
  - Atypical mycobacterial infection [Unknown]
  - Oxygen saturation decreased [Recovered/Resolved]
  - Pyrexia [Unknown]
  - Condition aggravated [Unknown]
  - Disseminated intravascular coagulation [Unknown]
  - Haemoglobin decreased [Recovered/Resolved]
  - Haematocrit decreased [Recovered/Resolved]
  - Blood potassium increased [Recovered/Resolved]
